FAERS Safety Report 4557748-8 (Version None)
Quarter: 2005Q1

REPORT INFORMATION
  Report Type: 
  Country: None (occurrence: None)
  Receive Date: 20050103
  Receipt Date: 20040730
  Transmission Date: 20050727
  Serious: Yes (Other)
  Sender: FDA-Public Use
  Company Number: 2004UW16286

PATIENT
  Age: 80 Year
  Sex: Female

DRUGS (16)
  1. CRESTOR [Suspect]
     Indication: BLOOD CHOLESTEROL INCREASED
     Dosage: 10 MG QD PO
     Route: 048
     Dates: start: 20040401, end: 20040701
  2. CRESTOR [Suspect]
     Indication: BLOOD CHOLESTEROL INCREASED
     Dosage: 10 MG BID PO
     Route: 048
     Dates: start: 20040701
  3. LOTREL [Concomitant]
  4. BEXTRA [Concomitant]
  5. FUROSEMIDE [Concomitant]
  6. TOPROL-XL [Suspect]
     Dosage: 100 MG PO
     Route: 048
     Dates: start: 20040701
  7. TOPROL-XL [Suspect]
     Dosage: 50 MG PO
     Route: 048
     Dates: end: 20040701
  8. ZOLOFT [Suspect]
  9. ALPRAZOLAM [Concomitant]
  10. FLECAINIDE ACETATE [Concomitant]
  11. ACTONEL [Concomitant]
  12. LEXAPRO [Concomitant]
  13. MULTIVITAMIN [Concomitant]
  14. CALCIUM WITH VITAMIN D [Concomitant]
  15. ACETAMINOPHEN W/ PROPOXYPHENE HCL [Concomitant]
  16. ASPIRIN [Concomitant]

REACTIONS (1)
  - BACK PAIN [None]
